FAERS Safety Report 25771394 (Version 1)
Quarter: 2025Q3

REPORT INFORMATION
  Report Type: Spontaneous
  Country: US (occurrence: US)
  Receive Date: 20250908
  Receipt Date: 20250908
  Transmission Date: 20251020
  Serious: No
  Sender: DOMPE FARMACEUTICI
  Company Number: US-FARMAPROD-202504-1244

PATIENT
  Sex: Female

DRUGS (27)
  1. OXERVATE [Suspect]
     Active Substance: CENEGERMIN-BKBJ
     Indication: Neurotrophic keratopathy
     Route: 047
     Dates: start: 20250402
  2. OXERVATE [Suspect]
     Active Substance: CENEGERMIN-BKBJ
  3. MURO-128 [Concomitant]
  4. ZINC-VITAMIN A-VITAMIN C [Concomitant]
  5. MULTI-DAY PLUS IRON [Concomitant]
  6. MODAFINIL [Concomitant]
     Active Substance: MODAFINIL
  7. MOUNJARO [Concomitant]
     Active Substance: TIRZEPATIDE
  8. TIZANIDINE HYDROCHLORIDE [Concomitant]
     Active Substance: TIZANIDINE HYDROCHLORIDE
  9. VITAMIN D2 [Concomitant]
     Active Substance: ERGOCALCIFEROL
  10. POTASSIUM [Concomitant]
     Active Substance: POTASSIUM
  11. VENLAFAXINE HCL [Concomitant]
     Active Substance: VENLAFAXINE HYDROCHLORIDE
  12. METFORMIN HYDROCHLORIDE [Concomitant]
     Active Substance: METFORMIN HYDROCHLORIDE
  13. GABAPENTIN [Concomitant]
     Active Substance: GABAPENTIN
  14. OMEPRAZOLE [Concomitant]
     Active Substance: OMEPRAZOLE
  15. FAMOTIDINE [Concomitant]
     Active Substance: FAMOTIDINE
  16. ROPINIROLE [Concomitant]
     Active Substance: ROPINIROLE
  17. FLUTICASONE PROPIONATE [Concomitant]
     Active Substance: FLUTICASONE PROPIONATE
  18. DOCUSATE CALCIUM [Concomitant]
     Active Substance: DOCUSATE CALCIUM
  19. COLESTIPOL HYDROCHLORIDE [Concomitant]
     Active Substance: COLESTIPOL HYDROCHLORIDE
  20. MORPHINE SULFATE [Concomitant]
     Active Substance: MORPHINE SULFATE
  21. TRAZODONE HCL [Concomitant]
     Active Substance: TRAZODONE HYDROCHLORIDE
  22. AMBIEN [Concomitant]
     Active Substance: ZOLPIDEM TARTRATE
  23. ALPRAZOLAM [Concomitant]
     Active Substance: ALPRAZOLAM
  24. TRELEGY ELLIPTA [Concomitant]
     Active Substance: FLUTICASONE FUROATE\UMECLIDINIUM BROMIDE\VILANTEROL TRIFENATATE
  25. ALBUTEROL SULFATE [Concomitant]
     Active Substance: ALBUTEROL SULFATE
  26. B12 [Concomitant]
  27. CANNABIDIOL [Concomitant]
     Active Substance: CANNABIDIOL

REACTIONS (8)
  - Eye pain [Not Recovered/Not Resolved]
  - Ocular hyperaemia [Unknown]
  - Lacrimation increased [Not Recovered/Not Resolved]
  - Photophobia [Not Recovered/Not Resolved]
  - Foreign body sensation in eyes [Unknown]
  - Headache [Unknown]
  - Therapy partial responder [Unknown]
  - Hypoaesthesia [Unknown]
